FAERS Safety Report 7718321-3 (Version None)
Quarter: 2011Q3

REPORT INFORMATION
  Report Type: 
  Country: None (occurrence: None)
  Receive Date: 20110830
  Receipt Date: 20110825
  Transmission Date: 20111222
  Serious: No
  Sender: FDA-Public Use
  Company Number: US-PFIZER INC-2011199072

PATIENT
  Sex: Female

DRUGS (3)
  1. LYRICA [Suspect]
     Indication: FIBROMYALGIA
     Dosage: 75 MG, 2 CAPSULE EVERY MORNING, ONE AT NOON, TWO EVERY EVENING
  2. LYRICA [Suspect]
     Dosage: 75MG/DAY
  3. LYRICA [Suspect]
     Dosage: 75 MG, 2 CAPSULE EVERY MORNING, ONE AT NOON, TWO EVERY EVENING

REACTIONS (3)
  - WEIGHT INCREASED [None]
  - IRRITABILITY [None]
  - ABNORMAL BEHAVIOUR [None]
